FAERS Safety Report 4375932-3 (Version None)
Quarter: 2004Q2

REPORT INFORMATION
  Report Type: 
  Country: None (occurrence: None)
  Receive Date: 20040607
  Receipt Date: 20040525
  Transmission Date: 20050107
  Serious: Yes (Hospitalization)
  Sender: FDA-Public Use
  Company Number: ZONI001437

PATIENT
  Age: 33 Year
  Sex: Female

DRUGS (4)
  1. EXCEGRAN (ZONISAMIDE) [Suspect]
     Indication: TEMPORAL LOBE EPILEPSY
     Dosage: 300 MG DAILY ORAL
     Route: 048
     Dates: start: 20040414, end: 20040430
  2. FLOMOX (CEFCAPENE) [Concomitant]
  3. DASEN (SERRAPEPTASE) [Concomitant]
  4. PL GRAN. (PARACETAMOL) [Concomitant]

REACTIONS (10)
  - CONJUNCTIVAL HYPERAEMIA [None]
  - ERYTHEMA [None]
  - EYE INFLAMMATION [None]
  - LIP EROSION [None]
  - MUCOSAL EROSION [None]
  - ORAL MUCOSAL DISORDER [None]
  - PHARYNGOLARYNGEAL PAIN [None]
  - PYREXIA [None]
  - SCAB [None]
  - SWELLING FACE [None]
